FAERS Safety Report 23270594 (Version 1)
Quarter: 2023Q4

REPORT INFORMATION
  Report Type: Spontaneous
  Country: PL (occurrence: PL)
  Receive Date: 20231207
  Receipt Date: 20231207
  Transmission Date: 20240109
  Serious: Yes (Other)
  Sender: FDA-Public Use
  Company Number: PL-URPL-DML-MLP.4401.1.549.2023

PATIENT
  Age: 37 Year
  Sex: Male
  Weight: 95 kg

DRUGS (3)
  1. ACETAMINOPHEN [Suspect]
     Active Substance: ACETAMINOPHEN
     Indication: Intervertebral disc disorder
     Dosage: UNK,DOSE 3 X 1G
     Route: 048
     Dates: start: 20230710, end: 20230724
  2. DICLOFENAC [Suspect]
     Active Substance: DICLOFENAC
     Indication: Intervertebral disc disorder
     Dosage: UNK,DOSE 2X1 AM
     Route: 042
     Dates: start: 20230710, end: 20230724
  3. MELOXICAM [Suspect]
     Active Substance: MELOXICAM
     Indication: Intervertebral disc disorder
     Dosage: UNK,DOSE 1X1
     Route: 042
     Dates: end: 20230724

REACTIONS (6)
  - Hepatitis [Recovered/Resolved]
  - Abdominal pain [Recovered/Resolved]
  - Nausea [Recovered/Resolved]
  - Alanine aminotransferase increased [Recovered/Resolved]
  - Gamma-glutamyltransferase increased [Recovered/Resolved]
  - Aspartate aminotransferase increased [Recovered/Resolved]

NARRATIVE: CASE EVENT DATE: 20230720
